FAERS Safety Report 10486330 (Version 4)
Quarter: 2015Q1

REPORT INFORMATION
  Report Type: Spontaneous
  Country: US (occurrence: US)
  Receive Date: 20141001
  Receipt Date: 20150317
  Transmission Date: 20150720
  Serious: Yes (Hospitalization)
  Sender: FDA-Public Use
  Company Number: US-BAYER-2014-145366

PATIENT
  Age: 38 Year
  Sex: Female
  Weight: 109 kg

DRUGS (13)
  1. LEVSIN [Concomitant]
     Active Substance: HYOSCYAMINE SULFATE
     Indication: ABDOMINAL DISCOMFORT
     Dosage: 0.125 MG, PRN
     Route: 060
  2. MIRENA [Suspect]
     Active Substance: LEVONORGESTREL
     Indication: CONTRACEPTION
     Dosage: 20 MCG/24HR, CONT
     Route: 015
     Dates: start: 20110321, end: 20121115
  3. ABILIFY [Concomitant]
     Active Substance: ARIPIPRAZOLE
     Dosage: 30 MG, QD
     Route: 048
  4. QVAR [Concomitant]
     Active Substance: BECLOMETHASONE DIPROPIONATE
     Dosage: 80 MCG
  5. DIFLUCAN [Concomitant]
     Active Substance: FLUCONAZOLE
     Dosage: 150 MG, QD
     Route: 048
  6. COGENTIN [Concomitant]
     Active Substance: BENZTROPINE MESYLATE
     Dosage: 0.5 MG, BID
     Route: 048
  7. NICORETTE [Concomitant]
     Active Substance: NICOTINE
     Dosage: 2 MG, UNK
     Route: 048
     Dates: start: 20121101
  8. GABAPENTIN. [Concomitant]
     Active Substance: GABAPENTIN
     Route: 048
  9. INDOMETHACIN. [Concomitant]
     Active Substance: INDOMETHACIN
     Dosage: 25 MG, UNK
     Route: 048
     Dates: start: 20121002
  10. ALBUTEROL. [Concomitant]
     Active Substance: ALBUTEROL
     Dosage: 2 PUFFS EVERY 4 HOURS
  11. ZOFRAN [Concomitant]
     Active Substance: ONDANSETRON HYDROCHLORIDE
     Indication: NAUSEA
     Dosage: EVERY 6
  12. BUSPAR [Concomitant]
     Active Substance: BUSPIRONE HYDROCHLORIDE
     Indication: ANXIETY
     Dosage: 10 MG, BID
     Route: 048
  13. CYMBALTA [Concomitant]
     Active Substance: DULOXETINE HYDROCHLORIDE
     Dosage: 60 MG, QD
     Route: 048

REACTIONS (4)
  - Uterine perforation [None]
  - Pain [None]
  - Device issue [None]
  - Injury [None]

NARRATIVE: CASE EVENT DATE: 201103
